FAERS Safety Report 23354200 (Version 7)
Quarter: 2024Q3

REPORT INFORMATION
  Report Type: Report from Study
  Country: CA (occurrence: CA)
  Receive Date: 20240101
  Receipt Date: 20240927
  Transmission Date: 20241016
  Serious: Yes (Life-Threatening, Other)
  Sender: TAKEDA
  Company Number: CA-TAKEDA-2023TUS104740

PATIENT
  Age: 79 Year
  Sex: Female

DRUGS (8)
  1. VEDOLIZUMAB [Suspect]
     Active Substance: VEDOLIZUMAB
     Indication: Colitis ulcerative
     Dosage: 300 MILLIGRAM
     Route: 042
     Dates: start: 20230429
  2. VEDOLIZUMAB [Suspect]
     Active Substance: VEDOLIZUMAB
     Dosage: 300 MILLIGRAM, Q4WEEKS
     Route: 042
     Dates: start: 20231026
  3. VEDOLIZUMAB [Suspect]
     Active Substance: VEDOLIZUMAB
     Dosage: 300 MILLIGRAM, Q4WEEKS
     Route: 042
  4. VEDOLIZUMAB [Suspect]
     Active Substance: VEDOLIZUMAB
     Dosage: 300 MILLIGRAM, Q4WEEKS
     Route: 042
  5. VEDOLIZUMAB [Suspect]
     Active Substance: VEDOLIZUMAB
     Dosage: 300 MILLIGRAM, Q4WEEKS
     Route: 042
  6. VEDOLIZUMAB [Suspect]
     Active Substance: VEDOLIZUMAB
     Dosage: 300 MILLIGRAM, Q4WEEKS
     Route: 042
  7. MESALAMINE [Concomitant]
     Active Substance: MESALAMINE
     Dosage: 1.2 GRAM
  8. PREDNISONE [Concomitant]
     Active Substance: PREDNISONE
     Dosage: UNK

REACTIONS (15)
  - Haematochezia [Not Recovered/Not Resolved]
  - Secretion discharge [Not Recovered/Not Resolved]
  - Colitis ulcerative [Unknown]
  - Intestinal stenosis [Unknown]
  - Fatigue [Unknown]
  - Off label use [Unknown]
  - Poor venous access [Unknown]
  - Anxiety [Unknown]
  - Increased tendency to bruise [Unknown]
  - Skin laxity [Unknown]
  - Faeces discoloured [Unknown]
  - Malaise [Unknown]
  - Abdominal pain lower [Unknown]
  - Weight increased [Unknown]
  - Eating disorder [Unknown]

NARRATIVE: CASE EVENT DATE: 20231026
